FAERS Safety Report 5567626-3 (Version None)
Quarter: 2007Q4

REPORT INFORMATION
  Report Type: 
  Country: None (occurrence: None)
  Receive Date: 20071214
  Receipt Date: 20071203
  Transmission Date: 20080405
  Serious: Yes (Other)
  Sender: FDA-Public Use
  Company Number: SPV1-2007-05079

PATIENT
  Age: 28 Year
  Sex: Female
  Weight: 56.7 kg

DRUGS (1)
  1. VYVANSE [Suspect]
     Indication: ATTENTION DEFICIT/HYPERACTIVITY DISORDER
     Dosage: 70 MG, 1X/DAY; QD, ORAL
     Route: 048
     Dates: start: 20070901, end: 20071101

REACTIONS (1)
  - HEPATITIS [None]
